FAERS Safety Report 5087721-5 (Version None)
Quarter: 2006Q3

REPORT INFORMATION
  Report Type: 
  Country: None (occurrence: None)
  Receive Date: 20060822
  Receipt Date: 20060822
  Transmission Date: 20061208
  Serious: Yes (Other)
  Sender: FDA-Public Use
  Company Number: None

PATIENT
  Sex: Female
  Weight: 66.6788 kg

DRUGS (2)
  1. COMPOUND W FREEZE OFF  PRESTIGE BRANDS, INC. [Suspect]
     Indication: SKIN PAPILLOMA
     Dosage: ONE CANISTER + 12 QTIP APPLICA  ONCE TOP
     Route: 061
     Dates: start: 20060806, end: 20060806
  2. NEOSPORIN [Concomitant]

REACTIONS (2)
  - BURNS THIRD DEGREE [None]
  - PHARMACEUTICAL PRODUCT COMPLAINT [None]
